FAERS Safety Report 25207007 (Version 1)
Quarter: 2025Q2

REPORT INFORMATION
  Report Type: Spontaneous
  Country: DE (occurrence: DE)
  Receive Date: 20250417
  Receipt Date: 20250417
  Transmission Date: 20250717
  Serious: Yes (Death)
  Sender: SANDOZ
  Company Number: DE-002147023-NVSC2021DE040638

PATIENT
  Sex: Female

DRUGS (2)
  1. ANASTROZOLE [Suspect]
     Active Substance: ANASTROZOLE
     Indication: Breast cancer metastatic
     Dosage: 1 MG, QD
     Route: 048
     Dates: start: 20190418, end: 20190911
  2. RIBOCICLIB [Suspect]
     Active Substance: RIBOCICLIB
     Indication: Breast cancer metastatic
     Dosage: 400 MG, QD (SCHEMA 21 DAYS INTAKE, 7 DAYS PAUSE)
     Route: 048
     Dates: start: 20190418, end: 20190829

REACTIONS (4)
  - Breast cancer metastatic [Fatal]
  - Malignant neoplasm progression [Fatal]
  - Neoplasm progression [Fatal]
  - Off label use [Unknown]

NARRATIVE: CASE EVENT DATE: 20200318
